FAERS Safety Report 8176445-3 (Version None)
Quarter: 2012Q1

REPORT INFORMATION
  Report Type: 
  Country: None (occurrence: None)
  Receive Date: 20120301
  Receipt Date: 20120221
  Transmission Date: 20120608
  Serious: Yes (Other)
  Sender: FDA-Public Use
  Company Number: US-JNJFOC-20120210997

PATIENT
  Sex: Female
  Weight: 88.45 kg

DRUGS (16)
  1. ADVAIR DISKUS 100/50 [Concomitant]
     Indication: RESPIRATORY DISORDER
     Dosage: 500/50MCG
     Route: 055
  2. TEGRETOL [Concomitant]
     Indication: CONVULSION
     Dosage: 200MCG
     Route: 048
  3. FOLIC ACID [Concomitant]
     Indication: RHEUMATOID ARTHRITIS
     Dosage: 500/50MCG
     Route: 048
  4. PROTONIX [Concomitant]
     Indication: ULCER
     Dosage: 500/50MCG
     Route: 048
  5. TOPROL-XL [Concomitant]
     Indication: CARDIAC DISORDER
     Dosage: 200MCG
     Route: 048
  6. METHOTREXATE [Concomitant]
     Indication: RHEUMATOID ARTHRITIS
     Dosage: 500/50MCG
     Route: 048
  7. ALBUTEROL [Concomitant]
     Indication: RESPIRATORY DISORDER
     Dosage: AS NEEDED
     Route: 065
  8. LIPITOR [Concomitant]
     Indication: BLOOD CHOLESTEROL
     Route: 048
  9. ARAVA [Concomitant]
     Indication: RESPIRATORY DISORDER
     Dosage: 500/50MCG
     Route: 048
  10. SANCTURA XR [Concomitant]
     Indication: CYSTITIS INTERSTITIAL
     Dosage: 500/50MCG
     Route: 048
  11. GABAPENTIN [Concomitant]
     Indication: PRODUCT USED FOR UNKNOWN INDICATION
     Dosage: 200MCG
     Route: 048
  12. PLAVIX [Concomitant]
     Indication: CARDIAC DISORDER
     Dosage: 500/50MCG
     Route: 048
  13. SYNTHROID [Concomitant]
     Indication: THYROID DISORDER
     Dosage: 200MCG
     Route: 048
  14. VENTOLIN [Concomitant]
     Indication: RESPIRATORY DISORDER
     Dosage: AS NEEDED
     Route: 048
  15. REMICADE [Suspect]
     Indication: RHEUMATOID ARTHRITIS
     Dosage: STOPE DATE REPORTED AS 04-JUN-2012
     Route: 042
     Dates: start: 20100101
  16. LIMBREL [Concomitant]
     Indication: ARTHRITIS
     Dosage: 200MCG
     Route: 048

REACTIONS (4)
  - PNEUMONIA [None]
  - BRONCHITIS [None]
  - HYPERTENSION [None]
  - RESTRICTIVE PULMONARY DISEASE [None]
